FAERS Safety Report 4828580-2 (Version None)
Quarter: 2005Q4

REPORT INFORMATION
  Report Type: 
  Country: None (occurrence: None)
  Receive Date: 20051115
  Receipt Date: 20051109
  Transmission Date: 20060501
  Serious: Yes (Life-Threatening)
  Sender: FDA-Public Use
  Company Number: 2005AP05837

PATIENT
  Age: 14866 Day
  Sex: Female

DRUGS (4)
  1. OMEPRAZOLE [Suspect]
     Dates: start: 20041125
  2. AMOXYCILLIN SODIUM [Suspect]
     Route: 023
     Dates: start: 20041125
  3. CLARITHROMYCIN [Suspect]
     Route: 048
     Dates: start: 20041125
  4. BENZYLPENICILLIN [Suspect]
     Route: 023

REACTIONS (3)
  - ANAPHYLACTIC REACTION [None]
  - DYSPNOEA [None]
  - URTICARIA [None]
